FAERS Safety Report 4731060-6 (Version None)
Quarter: 2005Q3

REPORT INFORMATION
  Report Type: 
  Country: None (occurrence: None)
  Receive Date: 20050726
  Receipt Date: 20040407
  Transmission Date: 20060218
  Serious: Yes (Life-Threatening)
  Sender: FDA-Public Use
  Company Number: 04GER0084

PATIENT
  Sex: 0

DRUGS (2)
  1. AGGRASTAT [Suspect]
  2. AGGRASTAT [Suspect]
     Dosage: N/A, INTRAVENOUS
     Route: 042

REACTIONS (1)
  - THROMBOCYTOPENIA [None]
